FAERS Safety Report 13518479 (Version 1)
Quarter: 2017Q2

REPORT INFORMATION
  Report Type: Report from Study
  Country: US (occurrence: US)
  Receive Date: 20170505
  Receipt Date: 20170505
  Transmission Date: 20170830
  Serious: Yes (Other)
  Sender: FDA-Public Use
  Company Number: US-ASTELLAS-2017US017242

PATIENT

DRUGS (4)
  1. BEVACIZUMAB [Suspect]
     Active Substance: BEVACIZUMAB
     Dosage: MAINTENANCE THERAPY 10 MG/KG, EVERY 2 WEEKS
     Route: 042
  2. ERLOTINIB [Suspect]
     Active Substance: ERLOTINIB
     Indication: BREAST CANCER METASTATIC
     Route: 048
  3. BEVACIZUMAB [Suspect]
     Active Substance: BEVACIZUMAB
     Indication: BREAST CANCER METASTATIC
     Dosage: INDUCTION THERAPY 10 MG/KG, EVERY 2 WEEKS
     Route: 042
  4. PACLITAXEL ALBUMIN [Suspect]
     Active Substance: PACLITAXEL
     Indication: BREAST CANCER METASTATIC
     Dosage: INDUCTION THERAPY 100 MG/M2, ONCE WEEKLY
     Route: 042

REACTIONS (1)
  - Cardiac failure congestive [Unknown]
